FAERS Safety Report 16892407 (Version 1)
Quarter: 2019Q4

REPORT INFORMATION
  Report Type: Spontaneous
  Country: GB (occurrence: GB)
  Receive Date: 20191007
  Receipt Date: 20191007
  Transmission Date: 20200122
  Serious: Yes (Other)
  Sender: FDA-Public Use
  Company Number: GB-MYLANLABS-2019M1092353

PATIENT
  Age: 3 Year
  Sex: Female

DRUGS (3)
  1. MONTELUKAST [Suspect]
     Active Substance: MONTELUKAST SODIUM
     Indication: ASTHMA
     Dosage: UNK
     Route: 048
     Dates: start: 20190201
  2. SALBUTAMOL [Concomitant]
     Active Substance: ALBUTEROL
     Dosage: UNK
  3. CLENIL MODULITE [Concomitant]
     Active Substance: BECLOMETHASONE DIPROPIONATE
     Dosage: UNK

REACTIONS (4)
  - Bruxism [Unknown]
  - Affect lability [Not Recovered/Not Resolved]
  - Agitation [Not Recovered/Not Resolved]
  - Aggression [Not Recovered/Not Resolved]
